FAERS Safety Report 8004667-0 (Version None)
Quarter: 2011Q4

REPORT INFORMATION
  Report Type: 
  Country: None (occurrence: None)
  Receive Date: 20111223
  Receipt Date: 20111220
  Transmission Date: 20120403
  Serious: Yes (Death)
  Sender: FDA-Public Use
  Company Number: US-JNJFOC-20110712217

PATIENT
  Sex: Male
  Weight: 65.77 kg

DRUGS (6)
  1. REMICADE [Suspect]
     Route: 042
     Dates: start: 20060502, end: 20080506
  2. MESALAMINE [Concomitant]
     Indication: CROHN'S DISEASE
  3. REMICADE [Suspect]
     Route: 042
     Dates: start: 20020801, end: 20020815
  4. REMICADE [Suspect]
     Route: 042
     Dates: start: 20080708, end: 20090512
  5. REMICADE [Suspect]
     Route: 042
     Dates: start: 20020912, end: 20030530
  6. REMICADE [Suspect]
     Indication: CROHN'S DISEASE
     Route: 042
     Dates: start: 20090714, end: 20091105

REACTIONS (1)
  - PROSTATE CANCER METASTATIC [None]
